FAERS Safety Report 16931234 (Version 1)
Quarter: 2019Q4

REPORT INFORMATION
  Report Type: Spontaneous
  Country: US (occurrence: US)
  Receive Date: 20191017
  Receipt Date: 20191017
  Transmission Date: 20200122
  Serious: No
  Sender: FDA-Public Use
  Company Number: US-BAUSCH-BL-2019-057372

PATIENT
  Sex: Female

DRUGS (2)
  1. XIFAXAN [Suspect]
     Active Substance: RIFAXIMIN
     Indication: IRRITABLE BOWEL SYNDROME
     Dosage: PHYSICIAN PRESCRIBED THE MEDICATION AGAIN APPROXIMATELY 2 WEEKS AGO WITH THE SAME REGIMEN
     Route: 048
     Dates: start: 201909
  2. XIFAXAN [Suspect]
     Active Substance: RIFAXIMIN
     Indication: DISEASE RECURRENCE

REACTIONS (6)
  - Flatulence [Recovering/Resolving]
  - Nausea [Recovering/Resolving]
  - Eructation [Recovering/Resolving]
  - Constipation [Recovering/Resolving]
  - Diarrhoea [Recovering/Resolving]
  - Gastrointestinal motility disorder [Recovering/Resolving]

NARRATIVE: CASE EVENT DATE: 2019
